FAERS Safety Report 11905837 (Version 3)
Quarter: 2016Q1

REPORT INFORMATION
  Report Type: Spontaneous
  Country: GB (occurrence: GB)
  Receive Date: 20160111
  Receipt Date: 20160212
  Transmission Date: 20160526
  Serious: Yes (Other)
  Sender: FDA-Public Use
  Company Number: GB-AMGEN-GBRSP2015137434

PATIENT
  Age: 72 Year
  Sex: Female

DRUGS (1)
  1. ENBREL [Suspect]
     Active Substance: ETANERCEPT
     Indication: RHEUMATOID ARTHRITIS
     Dosage: 50 MG, UNK (LAST DOSE WAS ON ON 01FEB2016)
     Route: 065
     Dates: start: 20151130

REACTIONS (9)
  - Condition aggravated [Recovered/Resolved]
  - Nausea [Recovered/Resolved]
  - Musculoskeletal stiffness [Unknown]
  - Joint effusion [Unknown]
  - Rheumatoid arthritis [Recovered/Resolved]
  - Mobility decreased [Unknown]
  - Arthralgia [Unknown]
  - Pain [Unknown]
  - Joint swelling [Unknown]

NARRATIVE: CASE EVENT DATE: 2015
